FAERS Safety Report 8920520 (Version 5)
Quarter: 2014Q1

REPORT INFORMATION
  Report Type: Report from Study
  Country: CA (occurrence: CA)
  Receive Date: 20121121
  Receipt Date: 20140129
  Transmission Date: 20141002
  Serious: Yes (Life-Threatening, Hospitalization, Other)
  Sender: FDA-Public Use
  Company Number: CA-ROCHE-1155061

PATIENT
  Age: 72 Year
  Sex: Female
  Weight: 49.9 kg

DRUGS (11)
  1. RITUXAN [Suspect]
     Indication: RHEUMATOID ARTHRITIS
     Dosage: LAST DOSE:  23/SEP/2011
     Route: 042
     Dates: start: 20090330
  2. RITUXAN [Suspect]
     Dosage: LAST DOSE: 02/APR/2013
     Route: 042
     Dates: start: 20100824
  3. PREDNISONE [Concomitant]
  4. ACLASTA [Concomitant]
  5. VITAMIN C [Concomitant]
  6. TECTA [Concomitant]
  7. OMEGA 3 [Concomitant]
  8. DIPHENHYDRAMINE HCL [Concomitant]
     Indication: PREMEDICATION
     Route: 048
     Dates: start: 20100824
  9. ACETAMINOPHEN [Concomitant]
     Indication: PREMEDICATION
     Route: 048
     Dates: start: 20100824
  10. METHYLPREDNISOLONE [Concomitant]
     Indication: PREMEDICATION
     Route: 042
     Dates: start: 20100824
  11. TYLENOL [Concomitant]
     Route: 065

REACTIONS (6)
  - Hip arthroplasty [Recovered/Resolved]
  - Atrial fibrillation [Recovering/Resolving]
  - Atrial flutter [Not Recovered/Not Resolved]
  - Heart rate increased [Not Recovered/Not Resolved]
  - Labile blood pressure [Unknown]
  - Rheumatoid arthritis [Unknown]
